FAERS Safety Report 5192262-0 (Version None)
Quarter: 2006Q4

REPORT INFORMATION
  Report Type: 
  Country: None (occurrence: None)
  Receive Date: 20061220
  Receipt Date: 20061207
  Transmission Date: 20070319
  Serious: Yes (Hospitalization)
  Sender: FDA-Public Use
  Company Number: 235187K06USA

PATIENT
  Age: 43 Year
  Sex: Female

DRUGS (6)
  1. REBIF [Suspect]
     Indication: MULTIPLE SCLEROSIS
     Dosage: SUBCUTANEOUS
     Route: 058
     Dates: start: 20060501, end: 20060701
  2. HALDOL (HALOPERIDOL /00027401/) [Concomitant]
  3. BACLOFEN [Concomitant]
  4. PERCOCET [Concomitant]
  5. LOVENOX [Concomitant]
  6. COLACE (DOCUSATE SODIUM) [Concomitant]

REACTIONS (6)
  - CONDITION AGGRAVATED [None]
  - DECUBITUS ULCER [None]
  - OSTEITIS [None]
  - PSEUDOMONAS INFECTION [None]
  - PURULENT DISCHARGE [None]
  - WOUND INFECTION [None]
